FAERS Safety Report 23885070 (Version 1)
Quarter: 2024Q2

REPORT INFORMATION
  Report Type: Spontaneous
  Country: US (occurrence: US)
  Receive Date: 20240522
  Receipt Date: 20240522
  Transmission Date: 20240716
  Serious: No
  Sender: FDA-Public Use
  Company Number: US-VIIV HEALTHCARE LIMITED-US2024061283

PATIENT
  Age: 39 Year
  Sex: Male

DRUGS (1)
  1. DOVATO [Suspect]
     Active Substance: DOLUTEGRAVIR SODIUM\LAMIVUDINE
     Indication: HIV infection
     Dosage: UNK
     Dates: start: 20240305, end: 20240423

REACTIONS (1)
  - Viral load increased [Unknown]

NARRATIVE: CASE EVENT DATE: 20240326
